FAERS Safety Report 7409188-1 (Version None)
Quarter: 2011Q2

REPORT INFORMATION
  Report Type: 
  Country: None (occurrence: None)
  Receive Date: 20110407
  Receipt Date: 20110407
  Transmission Date: 20111010
  Serious: No
  Sender: FDA-Public Use
  Company Number: None

PATIENT
  Age: 80 Year
  Sex: Male
  Weight: 64 kg

DRUGS (1)
  1. HEPARIN [Suspect]
     Dosage: OTHER IV
     Route: 042
     Dates: start: 20081209, end: 20081212

REACTIONS (1)
  - CEREBRAL HAEMORRHAGE [None]
